FAERS Safety Report 23077390 (Version 4)
Quarter: 2023Q4

REPORT INFORMATION
  Report Type: Spontaneous
  Country: JP (occurrence: JP)
  Receive Date: 20231018
  Receipt Date: 20231225
  Transmission Date: 20240109
  Serious: Yes (Death, Hospitalization, Other)
  Sender: FDA-Public Use
  Company Number: JP-GSKJP-JP2023JPN141509AA

PATIENT

DRUGS (10)
  1. DAPRODUSTAT [Suspect]
     Active Substance: DAPRODUSTAT
     Indication: Nephrogenic anaemia
     Dosage: 2 MG, 1D
     Route: 048
     Dates: end: 20230929
  2. ENTRESTO [Concomitant]
     Active Substance: SACUBITRIL\VALSARTAN
     Indication: Hypertension
     Dosage: 50 MG, BID
     Route: 048
     Dates: end: 20230929
  3. ENTRESTO [Concomitant]
     Active Substance: SACUBITRIL\VALSARTAN
     Indication: Cardiac failure
  4. POTASSIUM ASPARTATE [Concomitant]
     Active Substance: POTASSIUM ASPARTATE
     Indication: Hypokalaemia
     Dosage: 0.6 G, TID
     Route: 048
     Dates: end: 20230929
  5. AZOSEMIDE [Concomitant]
     Active Substance: AZOSEMIDE
     Indication: Cardiac failure
     Dosage: 30 MG, 1D
     Route: 048
     Dates: end: 20230929
  6. AMLODIPINE [Concomitant]
     Active Substance: AMLODIPINE BESYLATE
     Indication: Hypertension
     Dosage: 5 MG, 1D
     Route: 048
     Dates: end: 20230929
  7. JANUVIA [Concomitant]
     Active Substance: SITAGLIPTIN PHOSPHATE
     Indication: Diabetes mellitus
     Dosage: 25 MG, 1D
     Route: 048
     Dates: end: 20230929
  8. LANSOPRAZOLE [Concomitant]
     Active Substance: LANSOPRAZOLE
     Dosage: 15 MG, 1D
     Route: 048
     Dates: end: 20230929
  9. INSULIN GLARGINE [Concomitant]
     Active Substance: INSULIN GLARGINE
     Dosage: 2 DF, 1D
     Route: 058
     Dates: end: 20230929
  10. INSULIN ASPART RECOMBINANT [Concomitant]
     Active Substance: INSULIN ASPART
     Dosage: 4 DF, 1D
     Route: 058
     Dates: end: 20230929

REACTIONS (5)
  - Pneumonia aspiration [Fatal]
  - Hospitalisation [Unknown]
  - Vomiting [Fatal]
  - Pyrexia [Fatal]
  - Abdominal distension [Fatal]

NARRATIVE: CASE EVENT DATE: 20230929
